FAERS Safety Report 21172475 (Version 1)
Quarter: 2022Q3

REPORT INFORMATION
  Report Type: Spontaneous
  Country: US (occurrence: None)
  Receive Date: 20220803
  Receipt Date: 20220803
  Transmission Date: 20221027
  Serious: No
  Sender: FDA-Public Use
  Company Number: None

PATIENT
  Age: 38 Year
  Sex: Male
  Weight: 60.75 kg

DRUGS (2)
  1. BUPRENORPHINE AND NALOXONE SUBLINGUAL FILM [Suspect]
     Active Substance: BUPRENORPHINE HYDROCHLORIDE\NALOXONE HYDROCHLORIDE
     Indication: Drug dependence
     Dosage: OTHER QUANTITY : 1 FILM;?
     Route: 060
     Dates: start: 20220601, end: 20220803
  2. BUPRENORPHINE\NALOXONE [Concomitant]
     Active Substance: BUPRENORPHINE\NALOXONE

REACTIONS (9)
  - Product substitution issue [None]
  - Drug dependence [None]
  - Overdose [None]
  - Asthenia [None]
  - Hypersomnia [None]
  - Myalgia [None]
  - Feeling abnormal [None]
  - Constipation [None]
  - Libido decreased [None]

NARRATIVE: CASE EVENT DATE: 20220803
